FAERS Safety Report 19146660 (Version 1)
Quarter: 2021Q2

REPORT INFORMATION
  Report Type: Report from Study
  Country: BR (occurrence: BR)
  Receive Date: 20210416
  Receipt Date: 20210416
  Transmission Date: 20210717
  Serious: Yes (Hospitalization, Other)
  Sender: FDA-Public Use
  Company Number: NVSC2021BR082195

PATIENT
  Age: 60 Year
  Sex: Female

DRUGS (5)
  1. COSENTYX [Concomitant]
     Active Substance: SECUKINUMAB
     Dosage: 300 MG
     Route: 065
     Dates: start: 20191129
  2. ETANERCEPT [Suspect]
     Active Substance: ETANERCEPT
     Indication: PSORIASIS
     Dosage: UNK
     Route: 065
  3. AMYTRIL [Concomitant]
     Active Substance: AMITRIPTYLINE HYDROCHLORIDE
     Indication: PRODUCT USED FOR UNKNOWN INDICATION
     Dosage: 25 (UNITS NOT REPORTED)
     Route: 065
  4. LEFLUNOMID [Concomitant]
     Active Substance: LEFLUNOMIDE
     Indication: PSORIASIS
     Dosage: UNK
     Route: 065
  5. COSENTYX [Concomitant]
     Active Substance: SECUKINUMAB
     Indication: PSORIASIS
     Dosage: 300 MG
     Route: 065
     Dates: start: 20191129

REACTIONS (20)
  - Intervertebral disc disorder [Not Recovered/Not Resolved]
  - Sensory disturbance [Not Recovered/Not Resolved]
  - Hepatic steatosis [Unknown]
  - Liver disorder [Unknown]
  - Depression [Unknown]
  - Myocardial infarction [Recovering/Resolving]
  - Intracardiac thrombus [Unknown]
  - Dysarthria [Unknown]
  - Hepatitis [Unknown]
  - Hypokinesia [Not Recovered/Not Resolved]
  - Finger deformity [Unknown]
  - Psoriasis [Unknown]
  - Spinal disorder [Not Recovered/Not Resolved]
  - Diarrhoea [Not Recovered/Not Resolved]
  - Angina pectoris [Unknown]
  - Back disorder [Not Recovered/Not Resolved]
  - Pain [Recovered/Resolved]
  - Pain [Unknown]
  - Osteoporosis [Unknown]
  - Urinary incontinence [Not Recovered/Not Resolved]

NARRATIVE: CASE EVENT DATE: 20201203
